FAERS Safety Report 10535200 (Version 3)
Quarter: 2014Q4

REPORT INFORMATION
  Report Type: Spontaneous
  Country: BR (occurrence: BR)
  Receive Date: 20141022
  Receipt Date: 20141205
  Transmission Date: 20150529
  Serious: Yes (Other)
  Sender: FDA-Public Use
  Company Number: BR-PFIZER INC-2014284641

PATIENT
  Age: 49 Year
  Sex: Female
  Weight: 48 kg

DRUGS (16)
  1. SOTACOR [Concomitant]
     Active Substance: SOTALOL HYDROCHLORIDE
     Indication: CARDIAC DISORDER
     Dosage: UNK
  2. LEXOTAN [Concomitant]
     Active Substance: BROMAZEPAM
     Indication: CARDIAC DISORDER
  3. SUSTRATE [Concomitant]
     Active Substance: PROPATYL NITRATE
     Indication: CARDIAC DISORDER
  4. LYRICA [Suspect]
     Active Substance: PREGABALIN
     Indication: HYPOAESTHESIA
     Dosage: 1 CAPSULE OF 75 MG, 2X/DAY
     Route: 048
  5. SOTALOL. [Concomitant]
     Active Substance: SOTALOL
     Indication: ARRHYTHMIA
     Dosage: 1/4 OF 160MG, DAILY
     Dates: start: 1990
  6. SOTALOL. [Concomitant]
     Active Substance: SOTALOL
     Indication: DYSPNOEA
  7. SIMVASTATIN. [Concomitant]
     Active Substance: SIMVASTATIN
     Indication: CARDIAC DISORDER
     Dosage: UNK
  8. SINVASCOR [Concomitant]
     Active Substance: SIMVASTATIN
     Indication: PAIN
     Dosage: 1 ^CPS^ OF 20 MG WHEN GOING TO BED
     Dates: start: 20141008
  9. SUSTRATE [Concomitant]
     Active Substance: PROPATYL NITRATE
     Indication: PAIN
     Dosage: 1 ^CPS^, 2X/DAY
     Dates: start: 20141008
  10. CALCIUM [Concomitant]
     Active Substance: CALCIUM
     Indication: BONE DISORDER
     Dosage: 1 ^CPS^, DAILY
     Dates: start: 2011
  11. VASTAREL MR [Concomitant]
     Indication: CHEST PAIN
     Dosage: 1 ^CPS^ OF 35 MG, EVERY 12HRS
     Dates: start: 2013
  12. VASTAREL MR [Concomitant]
     Indication: CARDIAC DISORDER
  13. LYRICA [Suspect]
     Active Substance: PREGABALIN
     Indication: MUSCULAR WEAKNESS
     Dosage: 75 MG, 1X/DAY
     Route: 048
  14. ANCORON [Concomitant]
     Active Substance: AMIODARONE HYDROCHLORIDE
     Indication: ARRHYTHMIA
     Dosage: 1 ^CPS^ OF 100 MG, 2X/DAY
     Dates: start: 1990
  15. ASPIRINA PREVENT [Concomitant]
     Active Substance: ASPIRIN
     Indication: PAIN
     Dosage: 1 ^CPS^ OF 100 MG AFTER LUNCH
     Dates: start: 20141008
  16. LEXOTAN [Concomitant]
     Active Substance: BROMAZEPAM
     Indication: INSOMNIA
     Dosage: 1 ^CPS^ OF 3 MG AT NIGHT AS NEEDED
     Dates: start: 1990

REACTIONS (6)
  - Hypoaesthesia [Unknown]
  - Somnolence [Not Recovered/Not Resolved]
  - Gait disturbance [Unknown]
  - Cataract [Recovered/Resolved]
  - Feeling abnormal [Not Recovered/Not Resolved]
  - Temperature intolerance [Unknown]

NARRATIVE: CASE EVENT DATE: 201312
